FAERS Safety Report 4476975-1 (Version None)
Quarter: 2004Q4

REPORT INFORMATION
  Report Type: 
  Country: None (occurrence: None)
  Receive Date: 20041018
  Receipt Date: 20041007
  Transmission Date: 20050328
  Serious: Yes (Hospitalization, Other)
  Sender: FDA-Public Use
  Company Number: CA-JNJFOC-20040902953

PATIENT
  Sex: Male
  Weight: 120 kg

DRUGS (2)
  1. REMICADE [Suspect]
     Indication: ANKYLOSING SPONDYLITIS
     Route: 042
  2. FAMOTIDINE [Concomitant]
     Dosage: AS NEEDED.

REACTIONS (2)
  - ASCITES [None]
  - NON-HODGKIN'S LYMPHOMA [None]
